FAERS Safety Report 10905534 (Version 1)
Quarter: 2015Q1

REPORT INFORMATION
  Report Type: Report from Study
  Country: US (occurrence: US)
  Receive Date: 20150311
  Receipt Date: 20150311
  Transmission Date: 20150721
  Serious: Yes (Hospitalization, Other)
  Sender: FDA-Public Use
  Company Number: US-009507513-1503USA003777

PATIENT
  Age: 46 Year
  Sex: Male

DRUGS (14)
  1. PRINIVIL [Concomitant]
     Active Substance: LISINOPRIL
     Indication: HYPERTENSION
     Dosage: 10 MG, QD
  2. METFORMIN [Concomitant]
     Active Substance: METFORMIN HYDROCHLORIDE
     Indication: DIABETES MELLITUS
     Dosage: 500 MG, BID
  3. VENLAFAXINE HYDROCHLORIDE. [Concomitant]
     Active Substance: VENLAFAXINE HYDROCHLORIDE
     Dosage: 150 MG, QD
  4. WARFARIN SODIUM. [Concomitant]
     Active Substance: WARFARIN SODIUM
     Dosage: 4 MG, QD
  5. FENOFIBRATE. [Concomitant]
     Active Substance: FENOFIBRATE
     Indication: DYSLIPIDAEMIA
     Dosage: 145 MG, QD
  6. BACTRIM DS [Concomitant]
     Active Substance: SULFAMETHOXAZOLE\TRIMETHOPRIM
     Dosage: 1 IN 2 DAYS
  7. BEVACIZUMAB [Suspect]
     Active Substance: BEVACIZUMAB
     Indication: GLIOBLASTOMA MULTIFORME
     Dosage: 950 MG, (Q 14 DAYS; DAYS 1-5 AND 15-19/28 DAY CYCLE)
     Route: 042
     Dates: start: 20091125
  8. KEPPRA [Concomitant]
     Active Substance: LEVETIRACETAM
     Dosage: 500 MG, BID
  9. ZOCOR [Concomitant]
     Active Substance: SIMVASTATIN
     Indication: DYSLIPIDAEMIA
     Dosage: 20 MG, HS (AT BEDTIME)
  10. TEMODAR [Suspect]
     Active Substance: TEMOZOLOMIDE
     Indication: GLIOBLASTOMA MULTIFORME
     Dosage: 220 MG, QD (ON DAYS 1-5 AND 15-19 DURING 28 DAY CYCLE)
     Route: 048
     Dates: start: 20091125
  11. ASPIRIN. [Concomitant]
     Active Substance: ASPIRIN
     Dosage: 81 MG, QD
  12. LEVETIRACETAM. [Concomitant]
     Active Substance: LEVETIRACETAM
  13. PRILOSEC [Concomitant]
     Active Substance: OMEPRAZOLE MAGNESIUM
     Dosage: 20 MG, QD
  14. DECADRON [Concomitant]
     Active Substance: DEXAMETHASONE
     Dosage: 4 MG, BID

REACTIONS (11)
  - Deep vein thrombosis [Recovering/Resolving]
  - Insomnia [Unknown]
  - Liver function test abnormal [Unknown]
  - Haematuria [Unknown]
  - Lumbar vertebral fracture [Unknown]
  - Fatigue [Unknown]
  - Diarrhoea [Unknown]
  - Diabetes mellitus [Unknown]
  - Pulmonary embolism [Recovering/Resolving]
  - Muscular weakness [Unknown]
  - Bronchitis [Unknown]

NARRATIVE: CASE EVENT DATE: 20091203
